FAERS Safety Report 16909139 (Version 1)
Quarter: 2019Q4

REPORT INFORMATION
  Report Type: Spontaneous
  Country: CN (occurrence: CN)
  Receive Date: 20191011
  Receipt Date: 20191011
  Transmission Date: 20200122
  Serious: Yes (Other)
  Sender: FDA-Public Use
  Company Number: CN-DRREDDYS-GPV/CHN/19/0114955

PATIENT
  Age: 30 Year
  Sex: Female
  Weight: 68 kg

DRUGS (2)
  1. OLANZAPINE. [Suspect]
     Active Substance: OLANZAPINE
     Indication: SCHIZOPHRENIA
     Route: 048
     Dates: start: 20190921
  2. OLANZAPINE. [Suspect]
     Active Substance: OLANZAPINE
     Dosage: DOSE REDUCED
     Route: 048
     Dates: end: 20190930

REACTIONS (1)
  - Extrapyramidal disorder [Recovered/Resolved]

NARRATIVE: CASE EVENT DATE: 20190921
